FAERS Safety Report 7874738-8 (Version None)
Quarter: 2011Q4

REPORT INFORMATION
  Report Type: 
  Country: None (occurrence: None)
  Receive Date: 20111031
  Receipt Date: 20111026
  Transmission Date: 20120403
  Serious: No
  Sender: FDA-Public Use
  Company Number: US-PFIZER INC-2011261916

PATIENT
  Sex: Female
  Weight: 62.59 kg

DRUGS (9)
  1. NEOSPORIN [Suspect]
     Indication: PRURITUS
     Dosage: UNK
     Dates: start: 20110801, end: 20110101
  2. OXYCONTIN [Suspect]
     Indication: PAIN
     Dosage: 20 MG, 2X/DAY
     Dates: start: 20110801, end: 20110101
  3. PHENOBARBITAL [Concomitant]
     Indication: CONVULSION
     Dosage: 30 MG, 4X/DAY
  4. GABAPENTIN [Suspect]
     Indication: PAIN
  5. CENTRUM SILVER [Concomitant]
     Indication: SUPPLEMENTATION THERAPY
     Dosage: UNK
  6. GABAPENTIN [Suspect]
     Indication: SENSORY LOSS
  7. DIAZEPAM [Concomitant]
     Indication: CONVULSION
     Dosage: 5 MG, 4X/DAY
     Dates: start: 19700101
  8. PROPRANOLOL [Concomitant]
     Dosage: 20 MG, 4X/DAY
  9. GABAPENTIN [Suspect]
     Indication: OEDEMA
     Dosage: 100 MG, DAILY
     Route: 048
     Dates: start: 20110703

REACTIONS (7)
  - FEELING ABNORMAL [None]
  - DRUG INEFFECTIVE [None]
  - URTICARIA [None]
  - PRURITUS [None]
  - FEELING DRUNK [None]
  - INSOMNIA [None]
  - OEDEMA [None]
